FAERS Safety Report 16610241 (Version 1)
Quarter: 2019Q3

REPORT INFORMATION
  Report Type: Spontaneous
  Country: US (occurrence: US)
  Receive Date: 20190721
  Receipt Date: 20190721
  Transmission Date: 20191004
  Serious: No
  Sender: FDA-Public Use
  Company Number: None

PATIENT
  Age: 34 Year
  Sex: Male
  Weight: 83.25 kg

DRUGS (4)
  1. CLOMIPRAMINE [Suspect]
     Active Substance: CLOMIPRAMINE
     Indication: MIGRAINE
     Dosage: ?          QUANTITY:2 CAPSULE(S);?
     Route: 048
     Dates: start: 20190621, end: 20190627
  2. FINASTERIDE. [Concomitant]
     Active Substance: FINASTERIDE
  3. CLOMIPRAMINE [Suspect]
     Active Substance: CLOMIPRAMINE
     Indication: OBSESSIVE-COMPULSIVE DISORDER
     Dosage: ?          QUANTITY:2 CAPSULE(S);?
     Route: 048
     Dates: start: 20190621, end: 20190627
  4. COQ10 [Concomitant]
     Active Substance: UBIDECARENONE

REACTIONS (6)
  - Migraine [None]
  - Drug ineffective [None]
  - Anxiety [None]
  - Withdrawal syndrome [None]
  - Disturbance in attention [None]
  - Product substitution issue [None]
